FAERS Safety Report 18455496 (Version 1)
Quarter: 2020Q4

REPORT INFORMATION
  Report Type: Spontaneous
  Country: US (occurrence: US)
  Receive Date: 20201103
  Receipt Date: 20201103
  Transmission Date: 20210114
  Serious: No
  Sender: FDA-Public Use
  Company Number: US-GLENMARK PHARMACEUTICALS-2020GMK049693

PATIENT

DRUGS (2)
  1. TACROLIMUS. [Suspect]
     Active Substance: TACROLIMUS
     Dosage: UNK, SINGLE (HS)
     Route: 061
     Dates: start: 20200915, end: 20200915
  2. TACROLIMUS. [Suspect]
     Active Substance: TACROLIMUS
     Indication: LICHEN SCLEROSUS
     Dosage: UNK UNK, BID
     Route: 061
     Dates: start: 2019, end: 2019

REACTIONS (5)
  - Product administration error [Unknown]
  - Expired product administered [Unknown]
  - Product use in unapproved indication [Unknown]
  - Application site pain [Unknown]
  - Product storage error [Unknown]

NARRATIVE: CASE EVENT DATE: 2019
